FAERS Safety Report 4353379-3 (Version None)
Quarter: 2004Q2

REPORT INFORMATION
  Report Type: 
  Country: None (occurrence: None)
  Receive Date: 20040430
  Receipt Date: 20040415
  Transmission Date: 20050107
  Serious: Yes (Other)
  Sender: FDA-Public Use
  Company Number: CEL-2003-04277-ROC

PATIENT
  Age: 16 Year
  Sex: Male

DRUGS (3)
  1. DELSYM [Suspect]
     Indication: DRUG ABUSER
     Dosage: DRANK TWO BOTTLES AT ONCE, PO
     Route: 048
  2. CORICIDIN [Suspect]
     Indication: DRUG ABUSER
     Dosage: 16 PILLS, PO
     Route: 048
  3. COUGH SYRUP [Suspect]
     Indication: DRUG ABUSER
     Dosage: DRANK TWO BOTTLES AT ONCE, PO
     Route: 048

REACTIONS (5)
  - ALCOHOLISM [None]
  - DISORIENTATION [None]
  - DRUG ABUSER [None]
  - DRUG SCREEN POSITIVE [None]
  - HALLUCINATION [None]
